FAERS Safety Report 6985069-2 (Version None)
Quarter: 2010Q3

REPORT INFORMATION
  Report Type: 
  Country: None (occurrence: None)
  Receive Date: 20100915
  Receipt Date: 20100903
  Transmission Date: 20110219
  Serious: Yes (Hospitalization, Other)
  Sender: FDA-Public Use
  Company Number: PHHY2010US55700

PATIENT
  Sex: Female
  Weight: 33.107 kg

DRUGS (1)
  1. EXJADE [Suspect]
     Indication: NEOPLASM
     Dosage: 2000 MG, QD
     Route: 048
     Dates: start: 20080513, end: 20100701

REACTIONS (3)
  - ARTHRITIS [None]
  - INFECTION [None]
  - RASH GENERALISED [None]
